FAERS Safety Report 9690839 (Version 1)
Quarter: 2013Q4

REPORT INFORMATION
  Report Type: Spontaneous
  Country: US (occurrence: None)
  Receive Date: 20131114
  Receipt Date: 20131114
  Transmission Date: 20140711
  Serious: Yes (Hospitalization)
  Sender: FDA-Public Use
  Company Number: None

PATIENT
  Age: 78 Year
  Sex: Female
  Weight: 98.4 kg

DRUGS (1)
  1. GAMMAGARD [Suspect]
     Route: 042

REACTIONS (6)
  - Pyrexia [None]
  - Muscle spasms [None]
  - Chills [None]
  - Fatigue [None]
  - Pain [None]
  - Angioedema [None]
